FAERS Safety Report 6080801-7 (Version None)
Quarter: 2009Q1

REPORT INFORMATION
  Report Type: 
  Country: None (occurrence: None)
  Receive Date: 20090217
  Receipt Date: 20090206
  Transmission Date: 20090719
  Serious: Yes (Death, Hospitalization)
  Sender: FDA-Public Use
  Company Number: US-BIOGENIDEC-2008BI013125

PATIENT
  Age: 47 Year
  Sex: Male
  Weight: 84 kg

DRUGS (5)
  1. TYSABRI [Suspect]
     Indication: MULTIPLE SCLEROSIS
     Route: 042
     Dates: start: 20070419, end: 20080425
  2. VIAGRA [Concomitant]
     Indication: ERECTILE DYSFUNCTION
     Route: 048
     Dates: start: 20040826, end: 20080517
  3. PROVIGIL [Concomitant]
     Indication: FATIGUE
     Route: 048
     Dates: start: 20050321, end: 20080517
  4. BACLOFEN [Concomitant]
     Indication: MUSCLE SPASTICITY
     Route: 048
     Dates: start: 20060324, end: 20080517
  5. ALLEGRA D 24 HOUR [Concomitant]
     Indication: SEASONAL ALLERGY
     Route: 048
     Dates: start: 20060713, end: 20080517

REACTIONS (3)
  - ANOXIC ENCEPHALOPATHY [None]
  - MYOCARDIAL INFARCTION [None]
  - RENAL FAILURE ACUTE [None]
